FAERS Safety Report 4456669-9 (Version None)
Quarter: 2004Q3

REPORT INFORMATION
  Report Type: 
  Country: None (occurrence: None)
  Receive Date: 20040923
  Receipt Date: 20040219
  Transmission Date: 20050211
  Serious: Yes (Hospitalization)
  Sender: FDA-Public Use
  Company Number: 200411331US

PATIENT
  Sex: Male
  Weight: 106.8 kg

DRUGS (17)
  1. TAXOTERE [Suspect]
     Indication: PROSTATE CANCER METASTATIC
     Route: 042
     Dates: start: 20040108, end: 20040206
  2. XELODA [Suspect]
     Indication: PROSTATE CANCER METASTATIC
     Route: 048
     Dates: start: 20040108, end: 20040211
  3. VITAMIN E [Concomitant]
     Route: 048
     Dates: start: 20010101
  4. MULTIVITAMINS, PLAIN [Concomitant]
     Route: 048
     Dates: start: 19900101
  5. CARDIZEM [Concomitant]
     Route: 048
     Dates: start: 19900101
  6. SOTALOL HCL [Concomitant]
     Route: 048
     Dates: start: 20020101
  7. LOPID [Concomitant]
     Indication: BLOOD CHOLESTEROL INCREASED
     Route: 048
     Dates: start: 20020101
  8. LITHIUM [Concomitant]
     Indication: BIPOLAR DISORDER
     Route: 048
     Dates: start: 19920101
  9. RISPERDAL [Concomitant]
     Indication: BIPOLAR DISORDER
     Route: 048
     Dates: start: 20020101
  10. DITROPAN XL [Concomitant]
     Route: 048
     Dates: start: 19980101
  11. LASIX [Concomitant]
     Route: 048
     Dates: start: 20020101
  12. GLYBURIDE [Concomitant]
     Indication: DIABETES MELLITUS
     Route: 048
     Dates: start: 19990101
  13. GLYSET [Concomitant]
     Indication: DIABETES MELLITUS
     Route: 048
     Dates: start: 19990101
  14. ACTOS [Concomitant]
     Indication: DIABETES MELLITUS
     Route: 048
     Dates: start: 20020101
  15. ASPIRIN [Concomitant]
     Route: 048
     Dates: start: 19900101
  16. ZOMETA [Concomitant]
     Indication: METASTASES TO BONE
     Route: 042
     Dates: start: 20030818
  17. EPOGEN [Concomitant]
     Indication: ANAEMIA
     Dates: start: 20020603

REACTIONS (10)
  - ANOREXIA [None]
  - BLOOD GLUCOSE INCREASED [None]
  - CONFUSIONAL STATE [None]
  - DISEASE PROGRESSION [None]
  - FAILURE TO THRIVE [None]
  - GAIT DISTURBANCE [None]
  - MENTAL STATUS CHANGES [None]
  - METABOLIC ENCEPHALOPATHY [None]
  - PROSTATE CANCER [None]
  - WEIGHT DECREASED [None]
